FAERS Safety Report 9975801 (Version 2)
Quarter: 2014Q1

REPORT INFORMATION
  Report Type: Spontaneous
  Country: SI (occurrence: SI)
  Receive Date: 20140306
  Receipt Date: 20140331
  Transmission Date: 20141002
  Serious: Yes (Other)
  Sender: FDA-Public Use
  Company Number: SI-GILEAD-2014-0096115

PATIENT
  Age: 83 Year
  Sex: Male
  Weight: 79 kg

DRUGS (11)
  1. RANOLAZINE [Suspect]
     Indication: ANGINA UNSTABLE
     Dosage: 375 MG, QD
     Route: 048
     Dates: start: 20140220, end: 20140224
  2. LEVEMIR [Concomitant]
     Indication: TYPE 2 DIABETES MELLITUS
     Dosage: 24 IU, QD
  3. NOVORAPID [Concomitant]
     Indication: TYPE 2 DIABETES MELLITUS
     Dosage: 6-10 UNITS
     Dates: start: 2000
  4. ASPIRIN [Concomitant]
     Indication: ANGINA PECTORIS
     Dosage: 100 MG, QD
  5. PRENEWEL [Concomitant]
     Indication: HYPERTENSION
     Dosage: 4/1.25MG
  6. PRENESSA [Concomitant]
     Indication: HYPERTENSION
     Dosage: 4 MG, UNK
     Route: 048
  7. ATORIS [Concomitant]
     Indication: HYPERLIPIDAEMIA
     Dosage: 40 MG, UNK
  8. NOLPAZA [Concomitant]
     Indication: GASTRITIS
     Dosage: 20 MG, QD
     Dates: start: 20140219, end: 20140228
  9. BRILIQUE [Concomitant]
     Indication: CORONARY ARTERIAL STENT INSERTION
     Dosage: 90 MG, BID
     Dates: start: 20140219
  10. NITRODUR [Concomitant]
     Indication: ANGINA PECTORIS
     Dosage: 0.4 MG, UNK
     Route: 062
  11. OMNIC [Concomitant]
     Indication: BENIGN PROSTATIC HYPERPLASIA
     Dosage: UNK
     Route: 048
     Dates: start: 2000

REACTIONS (4)
  - Diplopia [Recovered/Resolved]
  - Dizziness [Recovered/Resolved]
  - Constipation [Recovered/Resolved]
  - Off label use [Recovered/Resolved]
